FAERS Safety Report 25934919 (Version 1)
Quarter: 2025Q4

REPORT INFORMATION
  Report Type: Report from Study
  Country: EU (occurrence: EU)
  Receive Date: 20251017
  Receipt Date: 20251017
  Transmission Date: 20260117
  Serious: Yes (Hospitalization)
  Sender: MYLAN
  Company Number: EU-MYLANLABS-2025M1088600

PATIENT
  Age: 37 Year
  Sex: Male

DRUGS (4)
  1. FONDAPARINUX [Suspect]
     Active Substance: FONDAPARINUX
     Indication: Thrombosis with thrombocytopenia syndrome
     Dosage: UNK
  2. FONDAPARINUX [Suspect]
     Active Substance: FONDAPARINUX
     Indication: Anti-platelet factor 4 antibody negative
  3. APIXABAN [Suspect]
     Active Substance: APIXABAN
     Indication: Thrombosis with thrombocytopenia syndrome
     Dosage: UNK
  4. APIXABAN [Suspect]
     Active Substance: APIXABAN
     Indication: Anti-platelet factor 4 antibody negative

REACTIONS (1)
  - Drug ineffective [Unknown]
